FAERS Safety Report 4522759-5 (Version None)
Quarter: 2004Q4

REPORT INFORMATION
  Report Type: 
  Country: None (occurrence: None)
  Receive Date: 20041207
  Receipt Date: 20041124
  Transmission Date: 20050328
  Serious: Yes (Death, Congenital Anomaly)
  Sender: FDA-Public Use
  Company Number: A01200405929

PATIENT
  Age: 3 Month
  Sex: 0

DRUGS (2)
  1. STILNOX          (ZOLPIDEM) [Suspect]
     Indication: INSOMNIA
     Dosage: 10 MG, TRANSPLACENTAL
     Route: 064
     Dates: start: 20040501, end: 20040601
  2. PAROXETINE HCL [Suspect]
     Indication: ANXIETY
     Dosage: 20 MG TRANSPLACENTAL
     Route: 064
     Dates: start: 20040501, end: 20040601

REACTIONS (3)
  - ABORTION INDUCED [None]
  - DRUG EXPOSURE DURING PREGNANCY [None]
  - HYDROPS FOETALIS [None]
